FAERS Safety Report 10185896 (Version 6)
Quarter: 2016Q2

REPORT INFORMATION
  Report Type: Report from Study
  Country: JP (occurrence: JP)
  Receive Date: 20140521
  Receipt Date: 20160623
  Transmission Date: 20160815
  Serious: Yes (Death, Hospitalization, Other)
  Sender: FDA-Public Use
  Company Number: JP-BAYER-2013-098097

PATIENT
  Age: 76 Year
  Sex: Female
  Weight: 54 kg

DRUGS (8)
  1. DERMOVATE [Concomitant]
     Active Substance: CLOBETASOL
     Indication: DRUG TOXICITY PROPHYLAXIS
     Dosage: UNK
     Route: 061
     Dates: end: 20130822
  2. LOXONIN [Concomitant]
     Active Substance: LOXOPROFEN SODIUM
  3. MYSER [Concomitant]
     Active Substance: DIFLUPREDNATE
     Indication: DRUG TOXICITY PROPHYLAXIS
     Dosage: UNK
     Route: 061
     Dates: end: 20130822
  4. DERMOVATE [Concomitant]
     Active Substance: CLOBETASOL
     Indication: ECZEMA
  5. STIVARGA [Suspect]
     Active Substance: REGORAFENIB
     Indication: COLORECTAL CANCER RECURRENT
     Dosage: 160 MG, QD (ON FOR 3 WEEKS AND OFF FOR 1 WEEK FOR 1 CYCLE)
     Route: 048
     Dates: start: 20130802, end: 20130816
  6. HIRUDOID [Concomitant]
     Active Substance: GLYCOSAMINOGLYCANS
     Indication: DRUG TOXICITY PROPHYLAXIS
     Dosage: UNK
     Route: 061
     Dates: end: 20130826
  7. KERATINAMIN [Concomitant]
     Active Substance: UREA
     Indication: DRUG TOXICITY PROPHYLAXIS
     Dosage: UNK
     Route: 061
     Dates: end: 20130826
  8. MYSER [Concomitant]
     Active Substance: DIFLUPREDNATE
     Indication: ECZEMA

REACTIONS (9)
  - Rash [Unknown]
  - Death [Fatal]
  - Platelet count decreased [Recovered/Resolved]
  - Melaena [Recovering/Resolving]
  - Gastric ulcer [Recovered/Resolved]
  - Blood alkaline phosphatase increased [Not Recovered/Not Resolved]
  - Eczema [Recovering/Resolving]
  - Pruritus [Recovering/Resolving]
  - Haematemesis [Recovering/Resolving]

NARRATIVE: CASE EVENT DATE: 20130812
